FAERS Safety Report 22343538 (Version 2)
Quarter: 2023Q2

REPORT INFORMATION
  Report Type: Spontaneous
  Country: US (occurrence: US)
  Receive Date: 20230519
  Receipt Date: 20230608
  Transmission Date: 20230721
  Serious: Yes (Hospitalization, Other)
  Sender: FDA-Public Use
  Company Number: US-SUN PHARMACEUTICAL INDUSTRIES LTD-2023R1-388796

PATIENT
  Age: 57 Year
  Sex: Female

DRUGS (1)
  1. ACETAMINOPHEN [Suspect]
     Active Substance: ACETAMINOPHEN
     Indication: Osteomyelitis acute
     Dosage: UNK
     Route: 065

REACTIONS (3)
  - Metabolic acidosis [Recovered/Resolved]
  - Glutathione synthetase deficiency [Unknown]
  - Cardiopulmonary failure [Unknown]
